FAERS Safety Report 7416640-1 (Version None)
Quarter: 2011Q2

REPORT INFORMATION
  Report Type: 
  Country: None (occurrence: None)
  Receive Date: 20110415
  Receipt Date: 20110405
  Transmission Date: 20111010
  Serious: No
  Sender: FDA-Public Use
  Company Number: US-BIOGENIDEC-2011BI000337

PATIENT
  Age: 42 Year
  Sex: Female

DRUGS (1)
  1. TYSABRI [Suspect]
     Indication: MULTIPLE SCLEROSIS
     Route: 042
     Dates: start: 20101223

REACTIONS (11)
  - VISION BLURRED [None]
  - STRESS [None]
  - TEMPERATURE INTOLERANCE [None]
  - PERIPHERAL COLDNESS [None]
  - ARTHRALGIA [None]
  - VISUAL IMPAIRMENT [None]
  - MUSCULAR WEAKNESS [None]
  - BALANCE DISORDER [None]
  - WEIGHT DECREASED [None]
  - MEMORY IMPAIRMENT [None]
  - CHILLS [None]
